FAERS Safety Report 7730732-9 (Version None)
Quarter: 2011Q3

REPORT INFORMATION
  Report Type: 
  Country: None (occurrence: None)
  Receive Date: 20110906
  Receipt Date: 20110727
  Transmission Date: 20111222
  Serious: Yes (Hospitalization)
  Sender: FDA-Public Use
  Company Number: JP-GLAXOSMITHKLINE-B0736406A

PATIENT
  Sex: Male

DRUGS (7)
  1. DEPAKENE [Suspect]
     Indication: PRODUCT USED FOR UNKNOWN INDICATION
     Route: 048
     Dates: end: 20110726
  2. AMOBAN [Concomitant]
  3. TRAZODONE HYDROCHLORIDE [Concomitant]
  4. EURODIN [Concomitant]
  5. LAMICTAL [Suspect]
     Indication: BIPOLAR DISORDER
     Dosage: 25MG ALTERNATE DAYS
     Route: 048
     Dates: start: 20110621, end: 20110726
  6. SILECE [Concomitant]
  7. LUVOX [Concomitant]

REACTIONS (11)
  - BLOOD LACTATE DEHYDROGENASE INCREASED [None]
  - PYREXIA [None]
  - C-REACTIVE PROTEIN INCREASED [None]
  - WHITE BLOOD CELL COUNT INCREASED [None]
  - ACUTE GENERALISED EXANTHEMATOUS PUSTULOSIS [None]
  - GAMMA-GLUTAMYLTRANSFERASE INCREASED [None]
  - LYMPHOCYTE PERCENTAGE DECREASED [None]
  - ALANINE AMINOTRANSFERASE INCREASED [None]
  - EOSINOPHIL PERCENTAGE INCREASED [None]
  - MONOCYTE PERCENTAGE INCREASED [None]
  - ASPARTATE AMINOTRANSFERASE INCREASED [None]
